FAERS Safety Report 9844028 (Version 1)
Quarter: 2013Q4

REPORT INFORMATION
  Report Type: Spontaneous
  Country: US (occurrence: None)
  Receive Date: 20131223
  Receipt Date: 20131223
  Transmission Date: 20140711
  Serious: No
  Sender: FDA-Public Use
  Company Number: 1000048689

PATIENT
  Age: 72 Year
  Sex: Male

DRUGS (8)
  1. LINZESS (LINACLOTIDE) (CAPSULES) [Suspect]
     Indication: IRRITABLE BOWEL SYNDROME
     Dosage: 290 MCG (290 MCG, 1 IN 1 D), ORAL
     Route: 048
     Dates: start: 20130801
  2. OMEPRAZOLE (OMEPRAZOLE) (OMEPRAZOLE) [Concomitant]
  3. SIMVASTATIN (SIMVASTATIN) (SIMVASTATIN) [Concomitant]
  4. BENICAR HCT (BENICAR HCT) (BENICAR HCT) [Concomitant]
  5. ASPIRIN (ACETYLSALICYLIC ACID) (ACETYLSALICYLIC ACID) [Concomitant]
  6. POTASSIUM CGLORUDE (POTASSIUM CHLORIDE) (POTASSIUM CHLORIDE) [Concomitant]
  7. MVI (VITAMINS NOS) (VITAMINS NOS) [Concomitant]
  8. CITALOPRAM (CITALOPRAM HYDROBROMIDE) (CITALOPRAM HYDROBROMIDE) [Concomitant]

REACTIONS (2)
  - Abdominal distension [None]
  - Muscle spasms [None]
